FAERS Safety Report 14456667 (Version 1)
Quarter: 2018Q1

REPORT INFORMATION
  Report Type: Spontaneous
  Country: US (occurrence: US)
  Receive Date: 20180130
  Receipt Date: 20180130
  Transmission Date: 20180509
  Serious: No
  Sender: FDA-Public Use
  Company Number: US-BIOGEN-2018BI00514681

PATIENT
  Sex: Female

DRUGS (2)
  1. SPINRAZA [Suspect]
     Active Substance: NUSINERSEN
     Indication: SPINAL MUSCULAR ATROPHY
     Route: 037
     Dates: start: 20171120
  2. SPINRAZA [Suspect]
     Active Substance: NUSINERSEN
     Dosage: FOURTH LOADING DOSE
     Route: 037
     Dates: start: 20170118

REACTIONS (1)
  - Muscle contracture [Unknown]
